FAERS Safety Report 8007071-4 (Version None)
Quarter: 2011Q4

REPORT INFORMATION
  Report Type: 
  Country: None (occurrence: None)
  Receive Date: 20111215
  Receipt Date: 20111212
  Transmission Date: 20120403
  Serious: Yes (Hospitalization)
  Sender: FDA-Public Use
  Company Number: 2011030522

PATIENT
  Age: 68 Year
  Sex: Female

DRUGS (12)
  1. PRIVIGEN [Suspect]
     Indication: IMMUNODEFICIENCY
     Dosage: 10 GQD, 10 GQD
     Route: 042
     Dates: start: 20110615, end: 20110615
  2. PRIVIGEN [Suspect]
     Indication: PLASMACYTOMA
     Dosage: 10 GQD, 10 GQD
     Route: 042
     Dates: start: 20110615, end: 20110615
  3. PRIVIGEN [Suspect]
     Indication: IMMUNODEFICIENCY
     Dosage: 10 GQD, 10 GQD
     Route: 042
     Dates: start: 20110811, end: 20110811
  4. PRIVIGEN [Suspect]
     Indication: PLASMACYTOMA
     Dosage: 10 GQD, 10 GQD
     Route: 042
     Dates: start: 20110811, end: 20110811
  5. ANTIBIOTICS (ANTIBIOTICS) [Concomitant]
  6. KALIUM /00031402/ (POTASSIUM CHLORIDE) [Concomitant]
  7. TOREM /01036501/ (TORASEMIDE) [Concomitant]
  8. LEVOTHYROXINE SODIUM [Concomitant]
  9. MAGNESIUM (MAGNESIUM) [Concomitant]
  10. SYMBICORT [Concomitant]
  11. PREDNISOLONE [Concomitant]
  12. VELCADE [Concomitant]

REACTIONS (3)
  - CHILLS [None]
  - PNEUMONIA [None]
  - LEUKOPENIA [None]
